FAERS Safety Report 11915229 (Version 2)
Quarter: 2016Q1

REPORT INFORMATION
  Report Type: Spontaneous
  Country: US (occurrence: US)
  Receive Date: 20160114
  Receipt Date: 20160307
  Transmission Date: 20160526
  Serious: No
  Sender: FDA-Public Use
  Company Number: US-LEO PHARMA-239582

PATIENT
  Sex: Male

DRUGS (1)
  1. PICATO [Suspect]
     Active Substance: INGENOL MEBUTATE
     Indication: PRECANCEROUS SKIN LESION
     Dates: start: 20160109, end: 20160111

REACTIONS (4)
  - Application site discolouration [Recovered/Resolved]
  - Drug administration error [Unknown]
  - Application site erythema [Recovered/Resolved]
  - Application site dryness [Recovered/Resolved]
